FAERS Safety Report 4834379-3 (Version None)
Quarter: 2005Q4

REPORT INFORMATION
  Report Type: 
  Country: None (occurrence: None)
  Receive Date: 20051114
  Receipt Date: 20051101
  Transmission Date: 20060501
  Serious: Yes (Death)
  Sender: FDA-Public Use
  Company Number: 2005133512

PATIENT
  Age: 37 Year
  Sex: Male
  Weight: 77.1115 kg

DRUGS (1)
  1. DIPHENHYDRAMINE (DIPHENHYDRAMINE) [Suspect]

REACTIONS (1)
  - LABORATORY TEST ABNORMAL [None]
